FAERS Safety Report 9388942 (Version 4)
Quarter: 2013Q4

REPORT INFORMATION
  Report Type: Spontaneous
  Country: IT (occurrence: IT)
  Receive Date: 20130708
  Receipt Date: 20131016
  Transmission Date: 20140711
  Serious: Yes (Other)
  Sender: FDA-Public Use
  Company Number: PHHY2013IT070413

PATIENT
  Age: 62 Year
  Sex: Female

DRUGS (9)
  1. METFORMIN SANDOZ [Suspect]
     Indication: DIABETES MELLITUS
     Route: 048
     Dates: start: 20130524, end: 20130531
  2. EUTIROX [Concomitant]
     Indication: HYPOTHYROIDISM
     Dosage: 25 UG, UNK
  3. COAPROVEL [Concomitant]
     Indication: HYPERTENSION
     Dosage: 150 MG, UNK
  4. CARDICOR [Concomitant]
     Dosage: 1.25 MG, UNK
  5. LANOXIN [Concomitant]
     Dosage: 0.062 MG, UNK
  6. CALCITRIOL [Concomitant]
  7. LANSOPRAZOLE [Concomitant]
  8. ANTICOAGULANTS [Concomitant]
     Route: 048
  9. COUMADINE [Concomitant]
     Indication: ANTICOAGULANT THERAPY
     Dosage: 5 MG, UNK
     Dates: start: 20120427, end: 20130531

REACTIONS (6)
  - Throat tightness [Recovered/Resolved]
  - Dyspnoea [Recovered/Resolved]
  - Abdominal pain [Recovered/Resolved]
  - Abdominal pain upper [Recovered/Resolved]
  - Diarrhoea [Recovered/Resolved]
  - Nausea [Recovered/Resolved]
